FAERS Safety Report 13365825 (Version 1)
Quarter: 2017Q1

REPORT INFORMATION
  Report Type: Spontaneous
  Country: US (occurrence: US)
  Receive Date: 20170323
  Receipt Date: 20170323
  Transmission Date: 20170429
  Serious: No
  Sender: FDA-Public Use
  Company Number: US-WARNER CHILCOTT-2016-002488

PATIENT
  Age: 86 Year
  Sex: Female
  Weight: 54 kg

DRUGS (6)
  1. RESTASIS [Concomitant]
     Active Substance: CYCLOSPORINE
     Indication: DRY EYE
     Dosage: 1 GTT, QD
     Route: 047
  2. ESOMEPRAZOLE [Concomitant]
     Active Substance: ESOMEPRAZOLE
     Indication: REFLUX GASTRITIS
     Dosage: 1 UNK, QOD
     Route: 048
  3. BABY ASPIRIN [Concomitant]
     Active Substance: ASPIRIN
     Dosage: 1 UNK, PRN
     Route: 048
  4. ESTRACE [Suspect]
     Active Substance: ESTRADIOL
     Indication: VULVOVAGINAL DRYNESS
     Dosage: 1 G, THREE TIMES A WEEK
     Route: 067
     Dates: start: 20161018, end: 201610
  5. BABY ASPIRIN [Concomitant]
     Active Substance: ASPIRIN
     Dosage: 1 UNK, QOD AND PRN
     Route: 048
  6. RESTASIS [Concomitant]
     Active Substance: CYCLOSPORINE
     Dosage: 1 GTT, BID
     Route: 047

REACTIONS (6)
  - Flatulence [Recovered/Resolved]
  - Abdominal distension [Recovered/Resolved]
  - Pollakiuria [Recovered/Resolved]
  - Pruritus [Recovered/Resolved]
  - Discomfort [Recovered/Resolved]
  - Burning sensation [Recovered/Resolved]

NARRATIVE: CASE EVENT DATE: 20161018
